FAERS Safety Report 5669461-4 (Version None)
Quarter: 2008Q1

REPORT INFORMATION
  Report Type: 
  Country: None (occurrence: None)
  Receive Date: 20080317
  Receipt Date: 20080314
  Transmission Date: 20080703
  Serious: Yes (Death, Hospitalization)
  Sender: FDA-Public Use
  Company Number: B0512388A

PATIENT
  Age: 87 Year
  Sex: Male

DRUGS (18)
  1. AMOXICILLIN + CLAVULANATE POTASSIUM [Suspect]
     Dosage: 3.6G PER DAY
     Dates: start: 20080226, end: 20080229
  2. DOXYCYCLINE [Suspect]
     Dosage: 100MG PER DAY
     Dates: start: 20080226, end: 20080228
  3. LACTULOSE [Concomitant]
  4. ISOSORBIDE MONONITRATE [Concomitant]
  5. CALCICHEW D3 [Concomitant]
  6. FUROSEMIDE [Concomitant]
  7. GLICLAZIDE [Concomitant]
  8. ATENOLOL [Concomitant]
  9. CITALOPRAM HYDROBROMIDE [Concomitant]
  10. FINASTERIDE [Concomitant]
  11. OXYBUTYNIN CHLORIDE [Concomitant]
  12. ENOXAPARIN [Concomitant]
  13. NICOTINELL [Concomitant]
  14. CIPROFLOXACIN [Concomitant]
  15. BACTROBAN [Concomitant]
  16. HALOPERIDOL [Concomitant]
  17. ZOPICLONE [Concomitant]
  18. LORAZEPAM [Concomitant]

REACTIONS (2)
  - HEPATOCELLULAR INJURY [None]
  - LOWER RESPIRATORY TRACT INFECTION [None]
